FAERS Safety Report 6245589-5 (Version None)
Quarter: 2009Q2

REPORT INFORMATION
  Report Type: 
  Country: None (occurrence: None)
  Receive Date: 20090625
  Receipt Date: 20090619
  Transmission Date: 20091009
  Serious: Yes (Other)
  Sender: FDA-Public Use
  Company Number: DE-WYE-H09885109

PATIENT
  Age: 72 Year
  Sex: Female

DRUGS (1)
  1. CORDAREX [Suspect]
     Route: 048
     Dates: start: 20080101

REACTIONS (3)
  - ACCIDENTAL OVERDOSE [None]
  - DRUG TOXICITY [None]
  - HEPATOTOXICITY [None]
